FAERS Safety Report 8030873-5 (Version None)
Quarter: 2012Q1

REPORT INFORMATION
  Report Type: 
  Country: None (occurrence: None)
  Receive Date: 20120109
  Receipt Date: 20120103
  Transmission Date: 20120608
  Serious: Yes (Other)
  Sender: FDA-Public Use
  Company Number: US-PFIZER INC-2011290553

PATIENT
  Sex: Female
  Weight: 70.295 kg

DRUGS (6)
  1. ACETYLSALICYLIC ACID [Concomitant]
     Dosage: UNK
  2. XANAX [Concomitant]
     Dosage: UNK
  3. CLINDAMYCIN HCL [Suspect]
     Indication: ANTIBIOTIC THERAPY
     Dosage: 300 MG, 3X/DAY
     Route: 048
     Dates: start: 20110822, end: 20110829
  4. PROZAC [Concomitant]
     Dosage: UNK
  5. REQUIP [Concomitant]
     Dosage: UNK
  6. FOSAMAX [Concomitant]
     Dosage: UNK

REACTIONS (3)
  - DIARRHOEA HAEMORRHAGIC [None]
  - COLITIS [None]
  - CROHN'S DISEASE [None]
